FAERS Safety Report 7380944-1 (Version None)
Quarter: 2011Q1

REPORT INFORMATION
  Report Type: 
  Country: None (occurrence: None)
  Receive Date: 20110329
  Receipt Date: 20110322
  Transmission Date: 20110831
  Serious: Yes (Death, Hospitalization)
  Sender: FDA-Public Use
  Company Number: PHHY2010US87613

PATIENT
  Sex: Female
  Weight: 45.3 kg

DRUGS (9)
  1. AMILORIDE HYDROCHLORIDE [Concomitant]
     Indication: POLYURIA
     Dosage: 70 MG, DAILY
     Route: 048
     Dates: start: 20110109
  2. KEPPRA [Concomitant]
     Indication: CONVULSION
     Dosage: 500 MG, Q12H
     Route: 048
     Dates: start: 20110107
  3. KETOCONAZOLE [Concomitant]
     Indication: HYPERCORTICOIDISM
     Dosage: 300 MG, TID
     Route: 048
     Dates: start: 20110112
  4. LEVOTHYROXINE SODIUM [Concomitant]
     Indication: HYPOTHYROIDISM
     Dosage: 75 MG, DAILY
     Route: 048
     Dates: start: 20110112
  5. AMILORIDE HYDROCHLORIDE [Concomitant]
     Indication: HYPOKALAEMIA
  6. KEPPRA [Concomitant]
     Indication: PROPHYLAXIS
  7. KEPPRA [Concomitant]
     Indication: METASTASES TO CENTRAL NERVOUS SYSTEM
  8. METOPIRONE [Suspect]
     Indication: CUSHING'S SYNDROME
     Dosage: 250 MG, TID
     Route: 048
     Dates: start: 20101125
  9. ACETAZOLAMIDE [Concomitant]
     Indication: ALKALOSIS
     Dosage: 250 MG, DAILY
     Route: 048
     Dates: start: 20110106

REACTIONS (1)
  - PNEUMONIA [None]
